FAERS Safety Report 19963189 (Version 1)
Quarter: 2021Q4

REPORT INFORMATION
  Report Type: Spontaneous
  Country: US (occurrence: US)
  Receive Date: 20211015
  Receipt Date: 20211015
  Transmission Date: 20220303
  Serious: No
  Sender: FDA-Public Use
  Company Number: None

PATIENT
  Age: 54 Year
  Sex: Female
  Weight: 60.75 kg

DRUGS (3)
  1. ALCOHOL [Suspect]
     Active Substance: ALCOHOL
     Indication: COVID-19 prophylaxis
     Route: 061
     Dates: start: 20210601
  2. HYPOTHYROID MEDICATION [Concomitant]
  3. VITAMINS [Concomitant]
     Active Substance: VITAMINS

REACTIONS (2)
  - Cough [None]
  - Secretion discharge [None]

NARRATIVE: CASE EVENT DATE: 20211015
